FAERS Safety Report 8532754-7 (Version None)
Quarter: 2012Q3

REPORT INFORMATION
  Report Type: 
  Country: None (occurrence: None)
  Receive Date: 20120724
  Receipt Date: 20120718
  Transmission Date: 20120928
  Serious: Yes (Other)
  Sender: FDA-Public Use
  Company Number: PHEH2012US014155

PATIENT
  Sex: Female

DRUGS (2)
  1. DIOVAN [Suspect]
     Dosage: 1 DF, QD
  2. EXFORGE [Concomitant]
     Dosage: UNK UKN, UNK

REACTIONS (2)
  - TYPE 1 DIABETES MELLITUS [None]
  - NEPHROPATHY [None]
